FAERS Safety Report 23584895 (Version 1)
Quarter: 2024Q1

REPORT INFORMATION
  Report Type: Report from Study
  Country: US (occurrence: US)
  Receive Date: 20240301
  Receipt Date: 20240301
  Transmission Date: 20240410
  Serious: Yes (Hospitalization)
  Sender: FDA-Public Use
  Company Number: US-ABBVIE-5659462

PATIENT
  Sex: Female

DRUGS (1)
  1. HUMIRA [Suspect]
     Active Substance: ADALIMUMAB
     Indication: Crohn^s disease
     Route: 058

REACTIONS (6)
  - Injury [Recovering/Resolving]
  - Accident [Recovering/Resolving]
  - Fall [Recovering/Resolving]
  - Haemorrhage [Recovering/Resolving]
  - Wound [Recovering/Resolving]
  - Rib fracture [Unknown]
